FAERS Safety Report 6836572-7 (Version None)
Quarter: 2010Q3

REPORT INFORMATION
  Report Type: 
  Country: None (occurrence: None)
  Receive Date: 20100708
  Receipt Date: 20100623
  Transmission Date: 20110219
  Serious: Yes (Other)
  Sender: FDA-Public Use
  Company Number: AMAG201000278

PATIENT
  Age: 66 Year
  Sex: Male
  Weight: 102.9 kg

DRUGS (11)
  1. FERAHEME [Suspect]
     Indication: IRON DEFICIENCY ANAEMIA
     Dosage: 510 MG, SINGLE, INTRAVENOUS
     Route: 042
     Dates: start: 20100114, end: 20100114
  2. FERAHEME [Suspect]
     Indication: IRON DEFICIENCY ANAEMIA
     Dosage: 510 MG, SINGLE, INTRAVENOUS
     Route: 042
     Dates: start: 20100121, end: 20100121
  3. FERROUS SULFATE TAB [Concomitant]
  4. CENTRUM SILVER (ASCORBIC ACID, CALCIUM, MINERALS NOS, RETINOL, TOCOPHE [Concomitant]
  5. AMBIEN [Concomitant]
  6. ADVICOR [Concomitant]
  7. QUINAPRIL HCL [Concomitant]
  8. NEXIUM [Concomitant]
  9. OMEGA 3 FISH (DOCOSAHEXANOIC ACID, EICOSAPENTAENOIC ACID) [Concomitant]
  10. VITAMIN B-COMPLEX (ASCORBIC ACID, CALCIUM PANTOTHENATE, CYANOCOBALAMIN [Concomitant]
  11. ASPIRIN [Concomitant]

REACTIONS (1)
  - SINUS BRADYCARDIA [None]
